FAERS Safety Report 24720144 (Version 1)
Quarter: 2024Q4

REPORT INFORMATION
  Report Type: Report from Study
  Country: DE (occurrence: DE)
  Receive Date: 20241211
  Receipt Date: 20241211
  Transmission Date: 20250114
  Serious: No
  Sender: ROCHE
  Company Number: DE-ROCHE-10000149195

PATIENT
  Sex: Female

DRUGS (2)
  1. OCREVUS [Suspect]
     Active Substance: OCRELIZUMAB
     Indication: Relapsing-remitting multiple sclerosis
     Dosage: FREQUENCY:195 MG
     Route: 042
     Dates: start: 20230228
  2. PREGABALIN [Concomitant]
     Active Substance: PREGABALIN

REACTIONS (1)
  - Infection susceptibility increased [Not Recovered/Not Resolved]
